FAERS Safety Report 5523919-7 (Version None)
Quarter: 2007Q4

REPORT INFORMATION
  Report Type: 
  Country: None (occurrence: None)
  Receive Date: 20071121
  Receipt Date: 20071113
  Transmission Date: 20080405
  Serious: Yes (Hospitalization)
  Sender: FDA-Public Use
  Company Number: US-SHR-US-2007-024662

PATIENT
  Age: 45 Year
  Sex: Female
  Weight: 77.098 kg

DRUGS (18)
  1. BETASERON [Suspect]
     Indication: RELAPSING-REMITTING MULTIPLE SCLEROSIS
     Dosage: 2 MIU, EVERY 2D
     Route: 058
     Dates: start: 20070623
  2. BETASERON [Suspect]
     Dosage: 4 MIU, EVERY 2D
     Route: 058
  3. BETASERON [Suspect]
     Dosage: 8 MIU, EVERY 2D
     Route: 058
  4. TYLENOL [Concomitant]
     Indication: PREMEDICATION
     Dosage: 650 MG, UNK
     Route: 048
  5. CORTICOSTEROIDS [Concomitant]
     Dates: start: 20070801
  6. CORTICOSTEROIDS [Concomitant]
  7. ALBUTEROL [Concomitant]
     Dosage: 90 A?G, AS REQ'D
     Route: 055
     Dates: start: 20000101
  8. DICLOFENAC SODIUM [Concomitant]
     Dosage: 75 MG, 2X/DAY
     Route: 048
     Dates: start: 20010101
  9. LEVOTHYROXINE SODIUM [Concomitant]
     Dosage: 100 A?G, 1X/DAY
     Route: 048
     Dates: start: 19991101
  10. LOVASTATIN [Concomitant]
     Dosage: 40 MG, 1X/DAY
     Route: 048
  11. MENEST [Concomitant]
     Dosage: 1.25 MG, 1X/DAY
     Route: 048
  12. LEXAPRO [Concomitant]
     Dosage: 10 MG, 1X/DAY
     Route: 048
  13. ADVAIR DISKUS 100/50 [Concomitant]
     Dosage: 250/50, 1 PUFF, A.M.
  14. CLONAZEPAM [Concomitant]
     Dosage: .5 MG, ONCE BED T.
     Route: 048
  15. RHINOCORT [Concomitant]
     Dosage: 2 SQUIRTS EACH NOSTRIL, BED T.
     Route: 045
  16. REQUIP [Concomitant]
     Dosage: 1 MG, BED T.
     Route: 048
  17. PENTASA [Concomitant]
     Dosage: 1000 MG, 4X/DAY
     Dates: start: 20070912
  18. ENTOCORT EC [Concomitant]
     Dosage: 3 MG, UNK
     Dates: start: 20070801, end: 20070917

REACTIONS (2)
  - CROHN'S DISEASE [None]
  - NAUSEA [None]
